FAERS Safety Report 4896806-5 (Version None)
Quarter: 2006Q1

REPORT INFORMATION
  Report Type: 
  Country: None (occurrence: None)
  Receive Date: 20060131
  Receipt Date: 20060124
  Transmission Date: 20060701
  Serious: Yes (Other)
  Sender: FDA-Public Use
  Company Number: PHEH2006US01331

PATIENT
  Sex: Female

DRUGS (2)
  1. ELIDEL [Suspect]
     Route: 061
     Dates: start: 20030101
  2. ELIDEL [Suspect]
     Dates: start: 20040101

REACTIONS (3)
  - APPLICATION SITE DRYNESS [None]
  - APPLICATION SITE REACTION [None]
  - SKIN CANCER [None]
